FAERS Safety Report 8765932 (Version 3)
Quarter: 2014Q1

REPORT INFORMATION
  Report Type: Spontaneous
  Country: US (occurrence: US)
  Receive Date: 20120904
  Receipt Date: 20140111
  Transmission Date: 20141002
  Serious: Yes (Other)
  Sender: FDA-Public Use
  Company Number: US-ASTRAZENECA-2012SE64785

PATIENT
  Age: 62 Year
  Sex: Female
  Weight: 53.1 kg

DRUGS (1)
  1. CRESTOR [Suspect]
     Indication: BLOOD CHOLESTEROL INCREASED
     Route: 048
     Dates: start: 2000, end: 20131228

REACTIONS (20)
  - Foot fracture [Unknown]
  - Myocardial infarction [Unknown]
  - Genital disorder female [Unknown]
  - Weight fluctuation [Unknown]
  - Osteoporosis [Unknown]
  - Hearing impaired [Unknown]
  - Decreased appetite [Unknown]
  - Heart rate irregular [Unknown]
  - Chest pain [Unknown]
  - Influenza [Recovering/Resolving]
  - Sneezing [Recovering/Resolving]
  - Sinus disorder [Recovering/Resolving]
  - Nasopharyngitis [Recovering/Resolving]
  - Epistaxis [Unknown]
  - Dysphonia [Unknown]
  - Back pain [Unknown]
  - Nasal congestion [Unknown]
  - Headache [Recovering/Resolving]
  - Drug dose omission [Unknown]
  - Intentional drug misuse [Not Recovered/Not Resolved]
